FAERS Safety Report 11740568 (Version 2)
Quarter: 2015Q4

REPORT INFORMATION
  Report Type: Spontaneous
  Country: US (occurrence: US)
  Receive Date: 20151110
  Receipt Date: 20151120
  Transmission Date: 20160304
  Serious: No
  Sender: FDA-Public Use
  Company Number: US-ELI_LILLY_AND_COMPANY-US201112003867

PATIENT
  Age: 66 Year
  Sex: Female

DRUGS (2)
  1. FORTEO [Suspect]
     Active Substance: TERIPARATIDE
     Dosage: 20 UG, QD
  2. FORTEO [Suspect]
     Active Substance: TERIPARATIDE
     Indication: OSTEOPOROSIS
     Dosage: 20 UG, QD
     Dates: start: 201201

REACTIONS (13)
  - Nervousness [Unknown]
  - Choking [Unknown]
  - Arthralgia [Unknown]
  - Pain [Unknown]
  - Hypersensitivity [Unknown]
  - Bone pain [Recovered/Resolved]
  - Heart rate increased [Unknown]
  - Coeliac disease [Recovered/Resolved]
  - Vitamin D decreased [Recovered/Resolved]
  - Inflammation [Recovered/Resolved]
  - Muscle strain [Unknown]
  - Dizziness [Unknown]
  - Injection site bruising [Recovered/Resolved]

NARRATIVE: CASE EVENT DATE: 20111208
